FAERS Safety Report 4667565-6 (Version None)
Quarter: 2005Q2

REPORT INFORMATION
  Report Type: 
  Country: None (occurrence: None)
  Receive Date: 20050520
  Receipt Date: 20041116
  Transmission Date: 20051028
  Serious: Yes (Other)
  Sender: FDA-Public Use
  Company Number: PHEH2004US12440

PATIENT
  Age: 79 Year
  Sex: Male

DRUGS (12)
  1. PREDNISONE TAB [Concomitant]
  2. DEXAMETHASONE [Concomitant]
  3. CALCIUM CARBONATE [Concomitant]
  4. PREVACID [Concomitant]
     Dosage: 30 MG, QD
  5. COUMADIN [Concomitant]
     Indication: DEEP VEIN THROMBOSIS
     Dosage: AS DIRECTED
  6. LUPRON [Concomitant]
     Dosage: 30 MG EVERY 4 MONTHS
     Dates: start: 20040301, end: 20040701
  7. NOVANTRONE [Concomitant]
     Dosage: 20 MG EVERY 28 DAYS
     Dates: start: 20040701, end: 20041101
  8. THALIDOMIDE [Concomitant]
     Dosage: 50 MG, QHS
     Dates: start: 20031001, end: 20040301
  9. TAXOTERE [Concomitant]
     Dosage: 100 MG EVERY 28 DAYS
     Dates: start: 20030801, end: 20040301
  10. ARANESP [Concomitant]
     Dosage: 200MCG EVERY WEEK
     Route: 058
     Dates: start: 20040501
  11. MIRTAZAPINE [Concomitant]
     Indication: RENAL DISORDER
     Dosage: 1/2 TAB QHS
     Dates: start: 20040510
  12. ZOMETA [Suspect]
     Indication: METASTASES TO BONE
     Dosage: 4 MG EVERY MONTH
     Route: 042
     Dates: start: 20020710, end: 20041018

REACTIONS (3)
  - ASEPTIC NECROSIS BONE [None]
  - MAXILLOFACIAL OPERATION [None]
  - TOOTH EXTRACTION [None]
